FAERS Safety Report 24653684 (Version 2)
Quarter: 2025Q1

REPORT INFORMATION
  Report Type: Other
  Country: GT (occurrence: GT)
  Receive Date: 20241122
  Receipt Date: 20250227
  Transmission Date: 20250408
  Serious: No
  Sender: TOLMAR
  Company Number: GT-TOLMAR, INC.-24GT053806

PATIENT
  Age: 68 Year
  Sex: Male

DRUGS (4)
  1. ELIGARD [Suspect]
     Active Substance: LEUPROLIDE ACETATE
     Indication: Prostate cancer
     Dosage: 22.5 MILLIGRAM, Q 3 MONTH
     Route: 058
     Dates: start: 20231130
  2. ELIGARD [Suspect]
     Active Substance: LEUPROLIDE ACETATE
     Dosage: 22.5 MILLIGRAM, Q 3 MONTH
     Route: 058
     Dates: start: 20250130
  3. ELIGARD [Suspect]
     Active Substance: LEUPROLIDE ACETATE
     Indication: Prostate cancer
  4. UNSPECIFIED INGREDIENT [Concomitant]
     Active Substance: UNSPECIFIED INGREDIENT
     Indication: Bone disorder
     Dosage: UNK, Q 3 MONTH

REACTIONS (5)
  - Facial pain [Not Recovered/Not Resolved]
  - Feeling cold [Not Recovered/Not Resolved]
  - Pain [Not Recovered/Not Resolved]
  - Malaise [Not Recovered/Not Resolved]
  - Pain in extremity [Unknown]

NARRATIVE: CASE EVENT DATE: 20241029
